FAERS Safety Report 23305008 (Version 1)
Quarter: 2023Q4

REPORT INFORMATION
  Report Type: Spontaneous
  Country: FR (occurrence: FR)
  Receive Date: 20231218
  Receipt Date: 20231218
  Transmission Date: 20240109
  Serious: Yes (Hospitalization, Other)
  Sender: FDA-Public Use
  Company Number: FR-AFSSAPS-TS2023001547

PATIENT
  Age: 87 Year
  Sex: Female
  Weight: 51 kg

DRUGS (5)
  1. AMOXICILLIN [Suspect]
     Active Substance: AMOXICILLIN
     Indication: Lung disorder
     Dosage: 1 GRAM, 3 TIMES A DAY
     Route: 048
     Dates: start: 20231018, end: 20231025
  2. TIXOCORTOL PIVALATE [Suspect]
     Active Substance: TIXOCORTOL PIVALATE
     Indication: Lung disorder
     Dosage: 1 DOSAGE FORM, ONCE A DAY
     Dates: start: 20231018, end: 20231025
  3. METFORMIN HYDROCHLORIDE [Concomitant]
     Active Substance: METFORMIN HYDROCHLORIDE
     Indication: Diabetes mellitus
     Dosage: 500 MILLIGRAM, 3 TIMES A DAY
     Route: 048
     Dates: end: 20231025
  4. ATORVASTATIN [Concomitant]
     Active Substance: ATORVASTATIN
     Indication: Dyslipidaemia
     Dosage: 10 MILLIGRAM, ONCE A DAY
     Route: 048
  5. Orocal [Concomitant]
     Indication: Mineral supplementation
     Dosage: 500 MILLIGRAM
     Route: 048
     Dates: end: 20231025

REACTIONS (1)
  - Meningitis [Recovering/Resolving]

NARRATIVE: CASE EVENT DATE: 20231025
